FAERS Safety Report 15275927 (Version 1)
Quarter: 2018Q3

REPORT INFORMATION
  Report Type: Spontaneous
  Country: US (occurrence: US)
  Receive Date: 20180814
  Receipt Date: 20180814
  Transmission Date: 20181010
  Serious: No
  Sender: FDA-Public Use
  Company Number: US-SAMSUNG BIOEPIS-SB-2018-05781

PATIENT
  Sex: Female
  Weight: 103 kg

DRUGS (1)
  1. RENFLEXIS [Suspect]
     Active Substance: INFLIXIMAB-ABDA
     Indication: PSORIATIC ARTHROPATHY
     Route: 065

REACTIONS (1)
  - Drug ineffective [Unknown]
